FAERS Safety Report 5917925-8 (Version None)
Quarter: 2008Q4

REPORT INFORMATION
  Report Type: 
  Country: None (occurrence: None)
  Receive Date: 20081014
  Receipt Date: 20081003
  Transmission Date: 20090506
  Serious: Yes (Other)
  Sender: FDA-Public Use
  Company Number: RO-ROCHE-589442

PATIENT
  Sex: Female

DRUGS (2)
  1. PEGASYS [Suspect]
     Dosage: FORM: PFS
     Route: 058
     Dates: start: 20080304
  2. COPEGUS [Concomitant]
     Route: 048
     Dates: start: 20080304

REACTIONS (1)
  - CARPAL TUNNEL SYNDROME [None]
